FAERS Safety Report 24199570 (Version 1)
Quarter: 2024Q3

REPORT INFORMATION
  Report Type: Spontaneous
  Country: FR (occurrence: FR)
  Receive Date: 20240812
  Receipt Date: 20240812
  Transmission Date: 20241017
  Serious: Yes (Hospitalization)
  Sender: TEVA
  Company Number: None

PATIENT
  Age: 62 Year
  Sex: Male
  Weight: 90 kg

DRUGS (1)
  1. AMOXICILLIN [Suspect]
     Active Substance: AMOXICILLIN
     Indication: Antibiotic prophylaxis
     Dosage: AMOXICILLINE
     Route: 065
     Dates: start: 20240627, end: 20240627

REACTIONS (2)
  - Anaphylactic reaction [Recovered/Resolved]
  - Contraindication to medical treatment [Recovered/Resolved]

NARRATIVE: CASE EVENT DATE: 20240627
